FAERS Safety Report 8808835 (Version 1)
Quarter: 2012Q4

REPORT INFORMATION
  Report Type: Spontaneous
  Country: US (occurrence: None)
  Receive Date: 20120920
  Receipt Date: 20120920
  Transmission Date: 20130627
  Serious: Yes (Hospitalization)
  Sender: FDA-Public Use
  Company Number: None

PATIENT
  Age: 83 Year
  Sex: Male

DRUGS (1)
  1. DABIGATRAN [Suspect]
     Indication: AFIB

REACTIONS (3)
  - Gastrointestinal haemorrhage [None]
  - Melaena [None]
  - Haemoglobin decreased [None]
